FAERS Safety Report 18956318 (Version 1)
Quarter: 2021Q1

REPORT INFORMATION
  Report Type: Report from Study
  Country: None (occurrence: US)
  Receive Date: 20210302
  Receipt Date: 20210302
  Transmission Date: 20210420
  Serious: Yes (Hospitalization, Other)
  Sender: FDA-Public Use
  Company Number: US-ABBVIE-21K-163-3791214-00

PATIENT
  Sex: Male

DRUGS (2)
  1. HUMIRA [Suspect]
     Active Substance: ADALIMUMAB
     Dosage: CITRATE FREE?DOSE INCREASED
     Route: 058
     Dates: start: 20111223
  2. HUMIRA [Suspect]
     Active Substance: ADALIMUMAB
     Indication: CROHN^S DISEASE
     Dosage: CITRATE FREE
     Route: 058
     Dates: start: 20111223

REACTIONS (11)
  - Mast cell activation syndrome [Unknown]
  - Diarrhoea [Recovered/Resolved]
  - Autoimmune disorder [Not Recovered/Not Resolved]
  - Adrenal insufficiency [Unknown]
  - Diabetes mellitus [Unknown]
  - Duodenitis [Unknown]
  - Gastritis [Unknown]
  - Sepsis [Recovered/Resolved]
  - Abdominal pain [Recovered/Resolved]
  - Cytokine storm [Unknown]
  - Eosinophilic oesophagitis [Unknown]
